FAERS Safety Report 16791086 (Version 1)
Quarter: 2019Q3

REPORT INFORMATION
  Report Type: Spontaneous
  Country: DE (occurrence: DE)
  Receive Date: 20190910
  Receipt Date: 20190910
  Transmission Date: 20191005
  Serious: Yes (Congenital Anomaly, Other)
  Sender: FDA-Public Use
  Company Number: DE-MYLANLABS-2019M1083840

PATIENT
  Age: 1 Day
  Sex: Female
  Weight: 1.99 kg

DRUGS (7)
  1. PRESINOL [Concomitant]
     Active Substance: METHYLDOPA
     Indication: HYPERTENSION
     Dosage: 375 [MG/D ]
     Route: 064
     Dates: start: 20180505, end: 20180624
  2. VAGIFLOR                           /00079701/ [Concomitant]
     Indication: VAGINAL INFECTION
     Dosage: UNK
     Route: 064
     Dates: start: 20180505, end: 20180510
  3. CELESTAN                           /00008501/ [Concomitant]
     Active Substance: BETAMETHASONE
     Indication: MATERNAL THERAPY TO ENHANCE FOETAL LUNG MATURITY
     Dosage: UNK
     Route: 064
     Dates: start: 20180427, end: 20180428
  4. PARTUSISTEN [Concomitant]
     Active Substance: FENOTEROL
     Indication: PREMATURE LABOUR
     Dosage: UNK
     Route: 064
     Dates: start: 20180505, end: 20180507
  5. VAGI-HEX [Concomitant]
     Indication: VAGINAL INFECTION
     Dosage: UNK
     Route: 064
     Dates: start: 20180501, end: 20180505
  6. CANDESARTAN. [Suspect]
     Active Substance: CANDESARTAN
     Indication: HYPERTENSION
     Dosage: 8 [MG/D ]
     Route: 064
     Dates: start: 20171025, end: 20180504
  7. FOLIC ACID. [Concomitant]
     Active Substance: FOLIC ACID
     Indication: PROPHYLAXIS OF NEURAL TUBE DEFECT
     Dosage: UNK
     Route: 064

REACTIONS (11)
  - Congenital renal cyst [Not Recovered/Not Resolved]
  - Nephrocalcinosis [Not Recovered/Not Resolved]
  - Patent ductus arteriosus [Recovered/Resolved]
  - Premature baby [Recovered/Resolved]
  - Ventricular septal defect [Not Recovered/Not Resolved]
  - Foetal exposure during pregnancy [Recovered/Resolved]
  - Temperature regulation disorder [Recovered/Resolved]
  - Facial asymmetry [Unknown]
  - Respiratory disorder neonatal [Recovered/Resolved]
  - Selective eating disorder [Recovered/Resolved]
  - Retrognathia [Not Recovered/Not Resolved]

NARRATIVE: CASE EVENT DATE: 20180624
